FAERS Safety Report 24655247 (Version 1)
Quarter: 2024Q4

REPORT INFORMATION
  Report Type: Spontaneous
  Country: US (occurrence: US)
  Receive Date: 20241123
  Receipt Date: 20241123
  Transmission Date: 20250114
  Serious: No
  Sender: ABBVIE
  Company Number: US-ABBVIE-6007698

PATIENT
  Sex: Female

DRUGS (2)
  1. BOTOX [Suspect]
     Active Substance: ONABOTULINUMTOXINA
     Indication: Skin wrinkling
     Dosage: TIME INTERVAL: AS NECESSARY: EVERY 1 DAYS
     Route: 030
     Dates: start: 20240926, end: 20240926
  2. BOTOX [Suspect]
     Active Substance: ONABOTULINUMTOXINA
     Indication: Skin wrinkling
     Dosage: TIME INTERVAL: AS NECESSARY: EVERY 1 DAYS
     Route: 030
     Dates: start: 20240926, end: 20240926

REACTIONS (2)
  - Device defective [Not Recovered/Not Resolved]
  - Drug ineffective [Not Recovered/Not Resolved]
